FAERS Safety Report 6730990-3 (Version None)
Quarter: 2010Q2

REPORT INFORMATION
  Report Type: 
  Country: None (occurrence: None)
  Receive Date: 20100518
  Receipt Date: 20100506
  Transmission Date: 20101027
  Serious: Yes (Life-Threatening, Hospitalization)
  Sender: FDA-Public Use
  Company Number: AT-WYE-G06088510

PATIENT
  Age: 23 Year
  Sex: Female

DRUGS (5)
  1. EFFEXOR XR [Suspect]
     Indication: PERSONALITY DISORDER
     Dates: start: 20090501, end: 20090626
  2. SEROQUEL [Concomitant]
     Indication: PERSONALITY DISORDER
     Dosage: 150 MG DAILY DOSE (50-0-100)
     Dates: start: 20090526
  3. OXAZEPAM [Concomitant]
     Indication: PERSONALITY DISORDER
     Dosage: 60 MG DAILY DOSE (15-15-30)
     Dates: start: 20090626
  4. SERTRALINE HCL [Concomitant]
     Indication: PERSONALITY DISORDER
     Dates: start: 20080601, end: 20081201
  5. SERTRALINE HCL [Concomitant]
     Dates: start: 20081201, end: 20090501

REACTIONS (3)
  - GRANULOCYTOPENIA [None]
  - SUICIDAL IDEATION [None]
  - SUICIDE ATTEMPT [None]
